FAERS Safety Report 18280548 (Version 1)
Quarter: 2020Q3

REPORT INFORMATION
  Report Type: Spontaneous
  Country: US (occurrence: US)
  Receive Date: 20200918
  Receipt Date: 20200918
  Transmission Date: 20201103
  Serious: No
  Sender: FDA-Public Use
  Company Number: US-GLAXOSMITHKLINE-US2020AMR182491

PATIENT
  Sex: Female

DRUGS (1)
  1. ZEJULA [Suspect]
     Active Substance: NIRAPARIB
     Indication: OVARIAN CANCER
     Dosage: 200 MG, QD IN THE PM WITH FOOD
     Route: 065
     Dates: start: 20200818

REACTIONS (3)
  - Drug monitoring procedure not performed [Unknown]
  - Decreased appetite [Unknown]
  - Nausea [Unknown]
